FAERS Safety Report 22587898 (Version 1)
Quarter: 2023Q2

REPORT INFORMATION
  Report Type: Spontaneous
  Country: CA (occurrence: None)
  Receive Date: 20230612
  Receipt Date: 20230612
  Transmission Date: 20230721
  Serious: Yes (Other)
  Sender: FDA-Public Use
  Company Number: CA-ROCHE-3364051

PATIENT
  Age: 70 Year
  Sex: Female

DRUGS (2)
  1. XELJANZ XR [Suspect]
     Active Substance: TOFACITINIB CITRATE
     Indication: Rheumatoid arthritis
     Route: 048
     Dates: start: 20220908, end: 20220910
  2. RITUXAN [Suspect]
     Active Substance: RITUXIMAB
     Indication: Product used for unknown indication
     Route: 065

REACTIONS (8)
  - Skin cancer [Not Recovered/Not Resolved]
  - Therapeutic product effect incomplete [Unknown]
  - Synovitis [Recovering/Resolving]
  - Urinary tract infection [Not Recovered/Not Resolved]
  - C-reactive protein increased [Recovering/Resolving]
  - Rash [Not Recovered/Not Resolved]
  - Hot flush [Unknown]
  - Headache [Not Recovered/Not Resolved]

NARRATIVE: CASE EVENT DATE: 20220908
